FAERS Safety Report 8900058 (Version 2)
Quarter: 2013Q1

REPORT INFORMATION
  Report Type: Spontaneous
  Country: CA (occurrence: CA)
  Receive Date: 20121109
  Receipt Date: 20130117
  Transmission Date: 20140127
  Serious: Yes (Hospitalization)
  Sender: FDA-Public Use
  Company Number: CA-BRISTOL-MYERS SQUIBB COMPANY-17086216

PATIENT
  Age: 49 Year
  Sex: Female

DRUGS (2)
  1. KENALOG-10 INJ [Suspect]
     Indication: TENDONITIS
     Dosage: 1DF: 40 MG IN BICEP SHEET AND 20 MG IN ACROMIOCLAVICULAR JOINT
     Dates: start: 20121025
  2. DIOVAN [Concomitant]

REACTIONS (1)
  - Hypersensitivity [Recovered/Resolved]
